FAERS Safety Report 4989019-X (Version None)
Quarter: 2006Q2

REPORT INFORMATION
  Report Type: 
  Country: None (occurrence: None)
  Receive Date: 20060425
  Receipt Date: 20060419
  Transmission Date: 20061013
  Serious: Yes (Death)
  Sender: FDA-Public Use
  Company Number: S06-USA-01515-01

PATIENT
  Age: 54 Year
  Sex: Male

DRUGS (4)
  1. CELEXA [Suspect]
     Indication: DEPRESSION
     Dosage: 20 MG ONCE PO
     Route: 048
     Dates: start: 20060316, end: 20060316
  2. GLUCOPHAGE [Concomitant]
  3. ZOCOR [Concomitant]
  4. ANTI-HYPERTENSIVE MEDICATION (NOS) [Concomitant]

REACTIONS (1)
  - COMPLETED SUICIDE [None]
